FAERS Safety Report 8255318-1 (Version None)
Quarter: 2012Q1

REPORT INFORMATION
  Report Type: 
  Country: None (occurrence: None)
  Receive Date: 20120329
  Receipt Date: 20120326
  Transmission Date: 20120608
  Serious: Yes (Death, Hospitalization)
  Sender: FDA-Public Use
  Company Number: 2012SP013295

PATIENT
  Age: 58 Year
  Sex: Female
  Weight: 85 kg

DRUGS (7)
  1. VICTRELIS [Suspect]
     Indication: HEPATITIS C
     Dosage: 2400 MG;QD
     Dates: start: 20111212, end: 20120301
  2. FLUOXETINE [Concomitant]
  3. DOXEPIN HCL [Concomitant]
  4. REBETOL [Suspect]
     Indication: HEPATITIS C
     Dosage: 1000 MG;QD
     Dates: start: 20111107, end: 20120301
  5. METOCLOPRAMIDE [Concomitant]
  6. PEGASYS [Suspect]
     Indication: HEPATITIS C
     Dosage: 180 MCG/M2;QW
     Dates: start: 20111107, end: 20120301
  7. PANTOPRAZOLE [Concomitant]

REACTIONS (8)
  - NAUSEA [None]
  - FEELING ABNORMAL [None]
  - EATING DISORDER [None]
  - ANAEMIA [None]
  - FLUID INTAKE REDUCED [None]
  - PNEUMONIA [None]
  - VOMITING [None]
  - URINARY TRACT INFECTION [None]
